FAERS Safety Report 4666969-5 (Version None)
Quarter: 2005Q2

REPORT INFORMATION
  Report Type: 
  Country: None (occurrence: None)
  Receive Date: 20050518
  Receipt Date: 20040901
  Transmission Date: 20051028
  Serious: Yes (Other)
  Sender: FDA-Public Use
  Company Number: 2004231866US

PATIENT
  Age: 62 Year
  Sex: Female

DRUGS (4)
  1. PROVERA [Suspect]
     Dates: start: 19880101, end: 19910101
  2. PREMARIN [Suspect]
     Dates: start: 19880101, end: 20000101
  3. MEDROXYPROGESTERONE ACETATE [Suspect]
     Dates: start: 19980101, end: 20000101
  4. PREMPRO [Suspect]
     Dates: start: 20000101, end: 20020923

REACTIONS (1)
  - THROMBOSIS [None]
